FAERS Safety Report 7788170-9 (Version None)
Quarter: 2011Q3

REPORT INFORMATION
  Report Type: 
  Country: None (occurrence: None)
  Receive Date: 20110930
  Receipt Date: 20110916
  Transmission Date: 20111222
  Serious: Yes (Other)
  Sender: FDA-Public Use
  Company Number: CA-JNJFOC-20110911542

PATIENT
  Age: 83 Year
  Sex: Female
  Weight: 45.36 kg

DRUGS (3)
  1. TYLENOL-500 [Suspect]
     Indication: ARTHRALGIA
     Route: 048
     Dates: start: 20110914, end: 20110914
  2. TYLENOL-500 [Suspect]
     Indication: INSOMNIA
     Route: 048
     Dates: start: 20110914, end: 20110914
  3. SYNTHROID [Concomitant]
     Route: 065

REACTIONS (2)
  - AMNESIA [None]
  - HEADACHE [None]
